FAERS Safety Report 6702163-1 (Version None)
Quarter: 2010Q2

REPORT INFORMATION
  Report Type: 
  Country: None (occurrence: None)
  Receive Date: 20100429
  Receipt Date: 20100416
  Transmission Date: 20101027
  Serious: Yes (Disabling)
  Sender: FDA-Public Use
  Company Number: FI-B.I. PHARMACEUTICALS,INC./RIDGEFIELD-2010-SW-00114SF

PATIENT
  Sex: Female

DRUGS (8)
  1. SIFROL TAB. 0.7 MG [Suspect]
     Indication: PARKINSON'S DISEASE
     Dosage: 1.75 MG
  2. ALENDRONATE [Suspect]
     Indication: OSTEOPENIA
     Dosage: 10 MG
     Dates: start: 20100220, end: 20100329
  3. ALENDRONATE [Suspect]
     Indication: INTERMITTENT CLAUDICATION
  4. STALEVO 100 [Suspect]
     Indication: PARKINSON'S DISEASE
     Dosage: 400 MG
  5. SINEMET [Suspect]
     Indication: PARKINSON'S DISEASE
     Dosage: 500 MG
  6. ELDEPRYL [Suspect]
     Indication: PARKINSON'S DISEASE
     Dosage: 10 MG
  7. SINEMET [Suspect]
  8. IMOVANE [Concomitant]

REACTIONS (3)
  - DRUG INTERACTION [None]
  - MUSCULOSKELETAL STIFFNESS [None]
  - TREMOR [None]
